FAERS Safety Report 13984533 (Version 1)
Quarter: 2017Q3

REPORT INFORMATION
  Report Type: Spontaneous
  Country: AE (occurrence: AE)
  Receive Date: 20170918
  Receipt Date: 20170918
  Transmission Date: 20171128
  Serious: Yes (Hospitalization, Other)
  Sender: FDA-Public Use
  Company Number: AE-SEATTLE GENETICS-2017SGN02172

PATIENT
  Age: 42 Year
  Sex: Male

DRUGS (1)
  1. BRENTUXIMAB VEDOTIN [Suspect]
     Active Substance: BRENTUXIMAB VEDOTIN
     Indication: HODGKIN^S DISEASE NODULAR SCLEROSIS
     Dosage: UNK
     Route: 065

REACTIONS (2)
  - Hodgkin^s disease nodular sclerosis recurrent [Recovered/Resolved]
  - Infection [Recovered/Resolved]
